FAERS Safety Report 8758271 (Version 1)
Quarter: 2012Q4

REPORT INFORMATION
  Report Type: Report from Study
  Country: FR (occurrence: FR)
  Receive Date: 20120829
  Receipt Date: 20120829
  Transmission Date: 20130627
  Serious: Yes (Other)
  Sender: FDA-Public Use
  Company Number: FR-ASTELLAS-2012EU005551

PATIENT
  Sex: Female
  Weight: 80 kg

DRUGS (1)
  1. SOLIFENACIN [Suspect]
     Indication: URINARY TRACT DISORDER
     Dosage: 5 mg, UID/QD
     Route: 048
     Dates: start: 20120504, end: 20120704

REACTIONS (2)
  - Blindness [Recovered/Resolved]
  - Dry mouth [Recovered/Resolved]
